FAERS Safety Report 7521958-8 (Version None)
Quarter: 2011Q2

REPORT INFORMATION
  Report Type: 
  Country: None (occurrence: None)
  Receive Date: 20110603
  Receipt Date: 20110519
  Transmission Date: 20111010
  Serious: No
  Sender: FDA-Public Use
  Company Number: US-B.I. PHARMACEUTICALS,INC./RIDGEFIELD-2011-BP-13519BP

PATIENT
  Age: 82 Year
  Sex: Male

DRUGS (5)
  1. LISINOPRIL [Concomitant]
  2. METOPROLOL TARTRATE [Concomitant]
  3. PRADAXA [Suspect]
     Indication: ATRIAL FIBRILLATION
     Dosage: 300 MG
     Route: 048
     Dates: start: 20110518
  4. POTASSIUM CHLORIDE [Concomitant]
  5. LASIX [Concomitant]

REACTIONS (1)
  - SKIN DISCOLOURATION [None]
